FAERS Safety Report 8255179-0 (Version None)
Quarter: 2012Q1

REPORT INFORMATION
  Report Type: 
  Country: None (occurrence: None)
  Receive Date: 20120322
  Receipt Date: 20120111
  Transmission Date: 20120608
  Serious: Yes (Life-Threatening, Hospitalization)
  Sender: FDA-Public Use
  Company Number: UTC-015467

PATIENT
  Age: 55 Year
  Sex: Female

DRUGS (4)
  1. TRACLEER [Concomitant]
  2. REVATIO [Concomitant]
  3. TYVASO [Suspect]
     Indication: PULMONARY ARTERIAL HYPERTENSION
     Dosage: INHALATION
     Route: 055
     Dates: start: 20111118
  4. COUMADIN [Suspect]
     Dosage: (125)

REACTIONS (4)
  - HAEMORRHAGE INTRACRANIAL [None]
  - VOMITING [None]
  - LETHARGY [None]
  - NERVOUS SYSTEM DISORDER [None]
